FAERS Safety Report 9294649 (Version 1)
Quarter: 2013Q2

REPORT INFORMATION
  Report Type: Report from Study
  Country: AU (occurrence: AU)
  Receive Date: 20130517
  Receipt Date: 20130517
  Transmission Date: 20140414
  Serious: Yes (Hospitalization)
  Sender: FDA-Public Use
  Company Number: AU-ROCHE-1225603

PATIENT
  Sex: Male

DRUGS (8)
  1. ACTEMRA [Suspect]
     Indication: RHEUMATOID ARTHRITIS
     Route: 042
     Dates: start: 20110908
  2. WARFARIN [Concomitant]
     Route: 048
  3. LIPITOR [Concomitant]
     Indication: BLOOD CHOLESTEROL INCREASED
     Route: 048
  4. ATACAND [Concomitant]
     Indication: HYPERTENSION
     Route: 048
  5. SERTRALINE HCL [Concomitant]
     Route: 065
  6. METFORMIN [Concomitant]
     Route: 065
  7. JANUMET [Concomitant]
     Route: 065
  8. SOMAC (AUSTRALIA) [Concomitant]
     Route: 065

REACTIONS (1)
  - Anaemia [Recovering/Resolving]
